FAERS Safety Report 24731205 (Version 1)
Quarter: 2024Q4

REPORT INFORMATION
  Report Type: Spontaneous
  Country: FR (occurrence: FR)
  Receive Date: 20241213
  Receipt Date: 20241213
  Transmission Date: 20250114
  Serious: Yes (Other)
  Sender: RANBAXY
  Company Number: FR-AFSSAPS-LM2024000633

PATIENT
  Age: 74 Year
  Sex: Female
  Weight: 41.7 kg

DRUGS (5)
  1. QUETIAPINE [Suspect]
     Active Substance: QUETIAPINE
     Indication: Bipolar disorder
     Dosage: 150 MILLIGRAM, DAILY
     Route: 048
     Dates: start: 202403, end: 20241003
  2. QUETIAPINE [Suspect]
     Active Substance: QUETIAPINE
     Dosage: 300 MILLIGRAM, DAILY
     Route: 048
     Dates: start: 20241003, end: 20241014
  3. QUETIAPINE [Suspect]
     Active Substance: QUETIAPINE
     Dosage: 50 MILLIGRAM, DAILY
     Route: 048
     Dates: start: 20241021, end: 20241023
  4. QUETIAPINE [Suspect]
     Active Substance: QUETIAPINE
     Dosage: 150 MILLIGRAM, DAILY
     Route: 048
     Dates: start: 20241024
  5. SOTALOL [Concomitant]
     Active Substance: SOTALOL
     Indication: Product used for unknown indication
     Dosage: UNK
     Route: 065

REACTIONS (1)
  - Hypothermia [Recovered/Resolved]
